FAERS Safety Report 17047826 (Version 1)
Quarter: 2019Q4

REPORT INFORMATION
  Report Type: Spontaneous
  Country: US (occurrence: US)
  Receive Date: 20191119
  Receipt Date: 20191119
  Transmission Date: 20200122
  Serious: No
  Sender: FDA-Public Use
  Company Number: US-VIFOR (INTERNATIONAL) INC.-VIT-2019-11430

PATIENT
  Sex: Male

DRUGS (8)
  1. ASPRIN [Concomitant]
     Active Substance: ASPIRIN
  2. LISINOPRIL. [Concomitant]
     Active Substance: LISINOPRIL
  3. NOVOLIN [Concomitant]
     Active Substance: INSULIN HUMAN
  4. ATORVASTATIN [Concomitant]
     Active Substance: ATORVASTATIN
  5. GLUCOS/CHOND [Concomitant]
  6. VELTASSA [Suspect]
     Active Substance: PATIROMER
     Indication: HYPERKALAEMIA
     Route: 048
     Dates: start: 20190524
  7. MULTI VITAMIN [Concomitant]
     Active Substance: VITAMINS
  8. CARVEDILOL. [Concomitant]
     Active Substance: CARVEDILOL

REACTIONS (1)
  - Product dose omission [Unknown]
